FAERS Safety Report 10622247 (Version 1)
Quarter: 2014Q4

REPORT INFORMATION
  Report Type: Spontaneous
  Country: US (occurrence: None)
  Receive Date: 20141202
  Receipt Date: 20141202
  Transmission Date: 20150529
  Serious: No
  Sender: FDA-Public Use
  Company Number: None

PATIENT
  Age: 8 Year
  Sex: Male

DRUGS (2)
  1. GABAPENTIN 400 MG [Suspect]
     Active Substance: GABAPENTIN
     Indication: INTERMITTENT EXPLOSIVE DISORDER
     Route: 048
  2. DIVALPROEX ER 500 MG [Suspect]
     Active Substance: DIVALPROEX SODIUM
     Indication: AUTISM
     Dates: start: 20140415, end: 201411

REACTIONS (4)
  - Product substitution issue [None]
  - Abdominal discomfort [None]
  - Aggression [None]
  - Diarrhoea [None]

NARRATIVE: CASE EVENT DATE: 20141125
